FAERS Safety Report 4558233-X (Version None)
Quarter: 2005Q1

REPORT INFORMATION
  Report Type: 
  Country: None (occurrence: None)
  Receive Date: 20050121
  Receipt Date: 20041026
  Transmission Date: 20050727
  Serious: Yes (Death, Hospitalization, Other)
  Sender: FDA-Public Use
  Company Number: GBWYE146226OCT04

PATIENT
  Sex: Female

DRUGS (8)
  1. ENBREL [Suspect]
     Indication: PSORIATIC ARTHROPATHY
     Route: 058
     Dates: start: 20040720, end: 20041011
  2. METHOTREXATE [Concomitant]
     Indication: PSORIATIC ARTHROPATHY
     Dosage: UNKNOWN
     Dates: start: 20001001
  3. FOLIC ACID [Concomitant]
     Dates: start: 20040301
  4. CELEBREX [Concomitant]
     Dates: start: 20030301
  5. DOSULEPIN [Concomitant]
     Dates: start: 20010201
  6. LANSOPRAZOLE [Concomitant]
     Dates: start: 20000801
  7. SULFASALAZINE [Concomitant]
     Dates: start: 20040101
  8. LACTULOSE [Concomitant]
     Dates: end: 20041008

REACTIONS (1)
  - OVARIAN CANCER [None]
